FAERS Safety Report 7715005-2 (Version None)
Quarter: 2011Q3

REPORT INFORMATION
  Report Type: 
  Country: None (occurrence: None)
  Receive Date: 20110829
  Receipt Date: 20110518
  Transmission Date: 20111222
  Serious: No
  Sender: FDA-Public Use
  Company Number: US-ASTRAZENECA-2011SE32021

PATIENT
  Age: 68 Year
  Sex: Male

DRUGS (6)
  1. VIMOVO [Suspect]
     Indication: ANTIINFLAMMATORY THERAPY
     Dosage: 500 MG / 20 MG TWO TIMES A DAY
     Route: 048
     Dates: start: 20110502
  2. FOLIC ACID [Concomitant]
  3. METHOTREXATE [Suspect]
  4. ENBREL [Suspect]
  5. VICODIN [Concomitant]
  6. AVODART [Concomitant]

REACTIONS (3)
  - DYSPNOEA [None]
  - CHEST DISCOMFORT [None]
  - HAEMATOCHEZIA [None]
